FAERS Safety Report 4883106-2 (Version None)
Quarter: 2006Q1

REPORT INFORMATION
  Report Type: 
  Country: None (occurrence: None)
  Receive Date: 20060117
  Receipt Date: 20060117
  Transmission Date: 20060701
  Serious: Yes (Other)
  Sender: FDA-Public Use
  Company Number: None

PATIENT
  Age: 40 Year
  Sex: Female
  Weight: 105.2345 kg

DRUGS (11)
  1. FENTANYL [Suspect]
     Indication: PAIN
     Dosage: 50MCG   Q 72 HOURS  TOP
     Route: 061
     Dates: start: 20060110, end: 20060112
  2. MORPHINE SULFATE [Concomitant]
  3. PROMETHAZINE [Concomitant]
  4. LOVENOX [Concomitant]
  5. NEURONTIN [Concomitant]
  6. ZANTAC [Concomitant]
  7. CARDIZEM [Concomitant]
  8. TOPROL [Concomitant]
  9. AMITRIPTYLINE HCL [Concomitant]
  10. LORCET-HD [Concomitant]
  11. AMBIEN [Concomitant]

REACTIONS (1)
  - PRURITUS [None]
